FAERS Safety Report 5762707-3 (Version None)
Quarter: 2008Q2

REPORT INFORMATION
  Report Type: 
  Country: None (occurrence: None)
  Receive Date: 20080609
  Receipt Date: 20080530
  Transmission Date: 20081010
  Serious: Yes (Death)
  Sender: FDA-Public Use
  Company Number: AT-MERCK-0806AUT00001

PATIENT
  Age: 49 Year
  Sex: Female
  Weight: 45 kg

DRUGS (10)
  1. CANCIDAS [Suspect]
     Indication: EVIDENCE BASED TREATMENT
     Route: 041
  2. PIPERACILLIN SODIUM AND TAZOBACTAM SODIUM [Concomitant]
     Indication: PROPHYLAXIS
     Route: 065
  3. AZATHIOPRINE [Concomitant]
     Indication: IMMUNOSUPPRESSION
     Route: 065
  4. ANTILYMPHOCYTE IMMUNOGLOBULIN [Concomitant]
     Indication: IMMUNOSUPPRESSION
     Route: 065
  5. METHYLPREDNISOLONE [Concomitant]
     Indication: IMMUNOSUPPRESSION
     Route: 065
  6. FLUCONAZOLE [Concomitant]
     Indication: SYSTEMIC ANTIFUNGAL TREATMENT
     Route: 065
  7. VANCOMYCIN [Concomitant]
     Indication: ANTIBIOTIC THERAPY
     Route: 065
  8. MEROPENEM [Concomitant]
     Indication: ANTIBIOTIC THERAPY
     Route: 065
  9. CIPROFLOXACIN [Concomitant]
     Indication: ANTIBIOTIC THERAPY
     Route: 065
  10. CYCLOSPORINE [Concomitant]
     Indication: IMMUNOSUPPRESSION
     Route: 065

REACTIONS (1)
  - SEPTIC SHOCK [None]
